FAERS Safety Report 13503420 (Version 1)
Quarter: 2017Q2

REPORT INFORMATION
  Report Type: Spontaneous
  Country: FR (occurrence: FR)
  Receive Date: 20170502
  Receipt Date: 20170502
  Transmission Date: 20170830
  Serious: Yes (Hospitalization)
  Sender: FDA-Public Use
  Company Number: FR-PFIZER INC-2017182311

PATIENT
  Age: 49 Year
  Sex: Female
  Weight: 70 kg

DRUGS (10)
  1. PREVISCAN /00789001/ [Concomitant]
     Active Substance: FLUINDIONE
     Dosage: UNK
  2. RANITIDINE. [Concomitant]
     Active Substance: RANITIDINE
     Dosage: UNK
  3. SINGULAIR [Concomitant]
     Active Substance: MONTELUKAST SODIUM
     Dosage: UNK
  4. KESTINLYO [Concomitant]
     Active Substance: EBASTINE
     Dosage: UNK
  5. XYZALL [Concomitant]
     Active Substance: LEVOCETIRIZINE DIHYDROCHLORIDE
  6. COLCHIMAX (FRANCE) [Interacting]
     Active Substance: COLCHICINE\OPIUM, POWDERED\TIEMONIUM
     Indication: BEHCET^S SYNDROME
     Dosage: 1 DF, 1X/DAY
     Route: 048
  7. TAHOR [Suspect]
     Active Substance: ATORVASTATIN CALCIUM
     Dosage: 10 MG, 1X/DAY
     Route: 048
     Dates: end: 20170205
  8. WYSTAMM [Interacting]
     Active Substance: RUPATADINE FUMARATE
     Indication: MASTOCYTOSIS
     Dosage: 10 MG, 2X/DAY
     Route: 048
     Dates: start: 201604
  9. MICARDIS [Concomitant]
     Active Substance: TELMISARTAN
     Dosage: UNK
  10. UVEDOSE [Concomitant]
     Active Substance: CHOLECALCIFEROL
     Dosage: UNK

REACTIONS (2)
  - Rhabdomyolysis [Recovered/Resolved]
  - Drug interaction [Recovered/Resolved]

NARRATIVE: CASE EVENT DATE: 20170202
